FAERS Safety Report 5235766-4 (Version None)
Quarter: 2007Q1

REPORT INFORMATION
  Report Type: 
  Country: None (occurrence: None)
  Receive Date: 20070212
  Receipt Date: 20070207
  Transmission Date: 20070707
  Serious: Yes (Death)
  Sender: FDA-Public Use
  Company Number: JP-AVENTIS-200710367JP

PATIENT
  Age: 73 Year
  Sex: Male

DRUGS (2)
  1. RILUTEK [Suspect]
     Indication: AMYOTROPHIC LATERAL SCLEROSIS
     Route: 048
     Dates: start: 20060107, end: 20061108
  2. UNKNOWN DRUG [Concomitant]

REACTIONS (1)
  - INJURY ASPHYXIATION [None]
